FAERS Safety Report 25682857 (Version 2)
Quarter: 2025Q3

REPORT INFORMATION
  Report Type: Spontaneous
  Country: CA (occurrence: CA)
  Receive Date: 20250814
  Receipt Date: 20250918
  Transmission Date: 20251020
  Serious: Yes (Other)
  Sender: OTSUKA
  Company Number: CA-MMM-Otsuka-073RQS9K

PATIENT
  Sex: Male

DRUGS (4)
  1. ABILIFY [Suspect]
     Active Substance: ARIPIPRAZOLE
     Indication: Schizophrenia
     Route: 065
     Dates: start: 2002
  2. RISPERIDONE [Suspect]
     Active Substance: RISPERIDONE
     Indication: Schizophrenia
     Route: 065
     Dates: start: 2002
  3. INVEGA [Suspect]
     Active Substance: PALIPERIDONE
     Indication: Schizophrenia
     Route: 065
     Dates: start: 2002
  4. PALIPERIDONE PALMITATE [Suspect]
     Active Substance: PALIPERIDONE PALMITATE
     Indication: Schizophrenia
     Route: 030

REACTIONS (22)
  - Infertility male [Unknown]
  - Metabolic disorder [Unknown]
  - Impaired work ability [Unknown]
  - Gastrointestinal motility disorder [Unknown]
  - Flatulence [Unknown]
  - Rhinorrhoea [Unknown]
  - Oropharyngeal pain [Unknown]
  - Amnesia [Unknown]
  - Appetite disorder [Unknown]
  - Asthenia [Unknown]
  - Drooling [Unknown]
  - Abdominal discomfort [Unknown]
  - Constipation [Unknown]
  - Dry mouth [Unknown]
  - Dyspepsia [Unknown]
  - Fatigue [Unknown]
  - Impulsive behaviour [Unknown]
  - Insomnia [Unknown]
  - Somnolence [Unknown]
  - Syncope [Unknown]
  - Tremor [Unknown]
  - Weight increased [Unknown]
